FAERS Safety Report 23044427 (Version 1)
Quarter: 2023Q4

REPORT INFORMATION
  Report Type: Spontaneous
  Country: SA (occurrence: SA)
  Receive Date: 20231009
  Receipt Date: 20231009
  Transmission Date: 20240109
  Serious: Yes (Hospitalization)
  Sender: FDA-Public Use
  Company Number: SA-STRIDES ARCOLAB LIMITED-2023SP015135

PATIENT
  Sex: Female

DRUGS (6)
  1. IBUPROFEN [Suspect]
     Active Substance: IBUPROFEN
     Indication: Drug provocation test
     Dosage: UNK, (FLAVOURED IBUPROFEN)
     Route: 048
  2. IBUPROFEN [Suspect]
     Active Substance: IBUPROFEN
     Dosage: UNK, (NON-FLAVOURED LIQUID IBUPROFEN) (TOTAL DOSE OF 100 MG-STARTING AT 10 MG)
     Route: 065
  3. ACETAMINOPHEN [Suspect]
     Active Substance: ACETAMINOPHEN
     Indication: Viral infection
     Dosage: UNK, (NON-FLAVOURED LIQUID)
     Route: 065
  4. ACETAMINOPHEN [Suspect]
     Active Substance: ACETAMINOPHEN
     Indication: Pyrexia
     Dosage: UNK, (FLAVOURED LIQUID THAT CONTAINED ANHYDROUS CITRIC ACID, FD+C RED NO. 40 (ALLURA RED, A DYE), GL
     Route: 048
  5. ACETAMINOPHEN [Suspect]
     Active Substance: ACETAMINOPHEN
     Indication: Rhinorrhoea
     Dosage: UNK, (NON-FLAVOURED LIQUID ACETAMINOPHEN CHALLENGE)
     Route: 065
  6. ACETAMINOPHEN [Suspect]
     Active Substance: ACETAMINOPHEN
     Indication: Drug provocation test

REACTIONS (1)
  - Fixed eruption [Recovered/Resolved]

NARRATIVE: CASE EVENT DATE: 20190101
